FAERS Safety Report 4547303-8 (Version None)
Quarter: 2005Q1

REPORT INFORMATION
  Report Type: 
  Country: None (occurrence: None)
  Receive Date: 20050105
  Receipt Date: 20041220
  Transmission Date: 20050727
  Serious: Yes (Death, Hospitalization)
  Sender: FDA-Public Use
  Company Number: USA041286662

PATIENT
  Age: 79 Year
  Sex: Male

DRUGS (1)
  1. ZYPREXA [Suspect]
     Indication: ANGER

REACTIONS (1)
  - DIFFICULTY IN WALKING [None]
